FAERS Safety Report 7469722-2 (Version None)
Quarter: 2011Q2

REPORT INFORMATION
  Report Type: 
  Country: None (occurrence: None)
  Receive Date: 20110510
  Receipt Date: 20110422
  Transmission Date: 20111010
  Serious: No
  Sender: FDA-Public Use
  Company Number: US-B.I. PHARMACEUTICALS,INC./RIDGEFIELD-2011-BP-11532BP

PATIENT
  Sex: Female

DRUGS (9)
  1. LAMOTRIGINE [Concomitant]
     Indication: CONVULSION
     Route: 048
  2. SINGULAIR [Concomitant]
     Indication: ASTHMA
     Route: 048
  3. CRESTOR [Concomitant]
     Indication: HYPERCHOLESTEROLAEMIA
     Route: 048
  4. SUCRALFATE [Concomitant]
     Indication: ANTIEMETIC SUPPORTIVE CARE
     Route: 048
  5. NEURONTIN [Concomitant]
     Indication: CONVULSION
     Route: 048
  6. TWYNSTA [Concomitant]
     Indication: HYPERTENSION
     Route: 048
  7. TRAZODONE HCL [Concomitant]
     Indication: INSOMNIA
     Route: 048
  8. PREVACID [Concomitant]
     Indication: GASTRIC DISORDER
     Route: 048
  9. SPIRIVA [Suspect]
     Indication: CHRONIC OBSTRUCTIVE PULMONARY DISEASE
     Dosage: 18 MCG
     Route: 055
     Dates: start: 20110422

REACTIONS (1)
  - CHILLS [None]
